FAERS Safety Report 19206421 (Version 3)
Quarter: 2021Q2

REPORT INFORMATION
  Report Type: Report from Study
  Country: US (occurrence: US)
  Receive Date: 20210503
  Receipt Date: 20210621
  Transmission Date: 20210717
  Serious: No
  Sender: FDA-Public Use
  Company Number: NVSC2021US094755

PATIENT
  Age: 74 Year
  Sex: Female

DRUGS (1)
  1. COSENTYX [Suspect]
     Active Substance: SECUKINUMAB
     Indication: PSORIATIC ARTHROPATHY
     Dosage: 300 MG, QMO
     Route: 058
     Dates: start: 20210322, end: 20210426

REACTIONS (3)
  - Drug ineffective [Unknown]
  - Joint swelling [Unknown]
  - Finger deformity [Unknown]

NARRATIVE: CASE EVENT DATE: 20210420
